FAERS Safety Report 25590845 (Version 1)
Quarter: 2025Q3

REPORT INFORMATION
  Report Type: Spontaneous
  Country: US (occurrence: None)
  Receive Date: 20250721
  Receipt Date: 20250721
  Transmission Date: 20251020
  Serious: No
  Sender: FDA-CTU
  Company Number: None

PATIENT
  Age: 49 Year
  Sex: Female
  Weight: 114.75 kg

DRUGS (3)
  1. ZYRTEC [Suspect]
     Active Substance: CETIRIZINE HYDROCHLORIDE
     Indication: Seasonal allergy
     Route: 048
     Dates: start: 20250401, end: 20250525
  2. Gluchophage [Concomitant]
  3. PEPCID [Concomitant]
     Active Substance: FAMOTIDINE

REACTIONS (5)
  - Therapy interrupted [None]
  - Pruritus [None]
  - Urticaria [None]
  - Erythema [None]
  - Skin burning sensation [None]

NARRATIVE: CASE EVENT DATE: 20250415
